FAERS Safety Report 5920582-8 (Version None)
Quarter: 2008Q4

REPORT INFORMATION
  Report Type: 
  Country: None (occurrence: None)
  Receive Date: 20081016
  Receipt Date: 20081008
  Transmission Date: 20090506
  Serious: Yes (Life-Threatening)
  Sender: FDA-Public Use
  Company Number: FR-ASTRAZENECA-2008CG01281

PATIENT
  Age: 23078 Day
  Sex: Female

DRUGS (6)
  1. NEXIUM [Suspect]
     Route: 048
     Dates: start: 20080327, end: 20080404
  2. VFEND [Suspect]
     Route: 042
     Dates: start: 20080326, end: 20080402
  3. NIMBEX [Suspect]
     Route: 042
     Dates: start: 20080313, end: 20080403
  4. KETAMINE HCL [Suspect]
     Route: 042
     Dates: start: 20080313, end: 20080402
  5. TIENAM [Suspect]
     Route: 042
     Dates: start: 20080321, end: 20080402
  6. TRIFLUCAN [Suspect]
     Route: 042
     Dates: start: 20080322, end: 20080327

REACTIONS (1)
  - BRADYCARDIA [None]
